FAERS Safety Report 12731552 (Version 1)
Quarter: 2016Q3

REPORT INFORMATION
  Report Type: Spontaneous
  Country: DE (occurrence: DE)
  Receive Date: 20160912
  Receipt Date: 20160912
  Transmission Date: 20161109
  Serious: Yes (Disabling)
  Sender: FDA-Public Use
  Company Number: DE-DRREDDYS-GER/GER/16/0082933

PATIENT
  Age: 62 Year
  Sex: Male

DRUGS (1)
  1. TERBINAFIN BETA 250 MG TABLETTEN [Suspect]
     Active Substance: TERBINAFINE
     Indication: ONYCHOMYCOSIS
     Route: 048
     Dates: start: 20160804, end: 20160807

REACTIONS (1)
  - Retinal tear [Not Recovered/Not Resolved]
